FAERS Safety Report 7418090-0 (Version None)
Quarter: 2011Q2

REPORT INFORMATION
  Report Type: 
  Country: None (occurrence: None)
  Receive Date: 20110407
  Receipt Date: 20110325
  Transmission Date: 20111010
  Serious: Yes (Disabling)
  Sender: FDA-Public Use
  Company Number: 2011-0915

PATIENT
  Age: 20 Year
  Sex: Male

DRUGS (2)
  1. DYSPORT [Suspect]
     Indication: OFF LABEL USE
     Dosage: 750 UNITS (750 UNITS,SINGLE CYCLE),PARENTERAL
     Route: 051
     Dates: start: 20110218, end: 20110218
  2. DYSPORT [Suspect]
     Indication: NEUROGENIC BLADDER
     Dosage: 750 UNITS (750 UNITS,SINGLE CYCLE),PARENTERAL
     Route: 051
     Dates: start: 20110218, end: 20110218

REACTIONS (2)
  - MUSCLE SPASTICITY [None]
  - MUSCULAR WEAKNESS [None]
